FAERS Safety Report 5940762-5 (Version None)
Quarter: 2008Q4

REPORT INFORMATION
  Report Type: 
  Country: None (occurrence: None)
  Receive Date: 20081104
  Receipt Date: 20081024
  Transmission Date: 20090506
  Serious: Yes (Other)
  Sender: FDA-Public Use
  Company Number: HR-JNJFOC-20080900478

PATIENT
  Sex: Male
  Weight: 72 kg

DRUGS (5)
  1. TMC114 [Suspect]
     Route: 048
  2. TMC114 [Suspect]
     Indication: ACQUIRED IMMUNODEFICIENCY SYNDROME
     Route: 048
  3. NORVIR [Suspect]
     Indication: ACQUIRED IMMUNODEFICIENCY SYNDROME
     Route: 048
  4. COMBIVIR [Concomitant]
  5. RALTEGRAVIR [Concomitant]

REACTIONS (1)
  - GASTRITIS EROSIVE [None]
